FAERS Safety Report 20865739 (Version 1)
Quarter: 2022Q2

REPORT INFORMATION
  Report Type: Other
  Country: GB (occurrence: None)
  Receive Date: 20220524
  Receipt Date: 20220524
  Transmission Date: 20220720
  Serious: Yes (Other)
  Sender: FDA-Public Use
  Company Number: GB-ROCHE-3041496

PATIENT
  Sex: Female

DRUGS (1)
  1. ESBRIET [Suspect]
     Active Substance: PIRFENIDONE
     Indication: Idiopathic pulmonary fibrosis
     Route: 048
     Dates: start: 20220207

REACTIONS (6)
  - Lower respiratory tract infection [Recovered/Resolved]
  - Cardiac disorder [Unknown]
  - Headache [Unknown]
  - Fibromyalgia [Unknown]
  - Cardiac failure [Unknown]
  - Hypersomnia [Unknown]
